FAERS Safety Report 6425941-5 (Version None)
Quarter: 2009Q4

REPORT INFORMATION
  Report Type: 
  Country: None (occurrence: None)
  Receive Date: 20091103
  Receipt Date: 20091103
  Transmission Date: 20100525
  Serious: Yes (Other)
  Sender: FDA-Public Use
  Company Number: None

PATIENT
  Age: 2 Year
  Sex: Male
  Weight: 13.6079 kg

DRUGS (1)
  1. FLOVENT HFA [Suspect]
     Indication: ASTHMA
     Dosage: 44MCG, 2 PUFFS TWICE A DAY; 4 PUFFS
     Dates: start: 20091101, end: 20091102

REACTIONS (2)
  - RASH GENERALISED [None]
  - URTICARIA [None]
